FAERS Safety Report 12429561 (Version 1)
Quarter: 2016Q2

REPORT INFORMATION
  Report Type: Spontaneous
  Country: GB (occurrence: GB)
  Receive Date: 20160602
  Receipt Date: 20160602
  Transmission Date: 20160815
  Serious: Yes (Other)
  Sender: FDA-Public Use
  Company Number: GB-UCBSA-2016020097

PATIENT
  Age: 31 Year
  Sex: Male

DRUGS (2)
  1. LEVETIRACETAM. [Concomitant]
     Active Substance: LEVETIRACETAM
     Indication: PRODUCT USED FOR UNKNOWN INDICATION
     Dosage: UNK
  2. KEPPRA [Suspect]
     Active Substance: LEVETIRACETAM
     Indication: EPILEPSY
     Dosage: 16 ML, 2X/DAY (BID)
     Dates: start: 2011

REACTIONS (5)
  - Tremor [Unknown]
  - Lung infection [Unknown]
  - Change in seizure presentation [Unknown]
  - Off label use [Unknown]
  - Complex partial seizures [Unknown]

NARRATIVE: CASE EVENT DATE: 2011
